FAERS Safety Report 5910287-1 (Version None)
Quarter: 2008Q4

REPORT INFORMATION
  Report Type: 
  Country: None (occurrence: None)
  Receive Date: 20081006
  Receipt Date: 20081006
  Transmission Date: 20090506
  Serious: Yes (Disabling)
  Sender: FDA-Public Use
  Company Number: None

PATIENT
  Sex: Female
  Weight: 79.3795 kg

DRUGS (2)
  1. FOSAMAX [Suspect]
     Indication: OSTEOPOROSIS
     Dosage: ONE PER WEEK
  2. BONIVA [Suspect]
     Indication: OSTEOPENIA
     Dosage: ONE PER MONTH

REACTIONS (6)
  - ARTHRALGIA [None]
  - ARTHROPATHY [None]
  - BONE DISORDER [None]
  - CYST [None]
  - FRACTURE DELAYED UNION [None]
  - OSTEONECROSIS [None]
